FAERS Safety Report 24711792 (Version 1)
Quarter: 2024Q4

REPORT INFORMATION
  Report Type: Spontaneous
  Country: US (occurrence: US)
  Receive Date: 20241209
  Receipt Date: 20241209
  Transmission Date: 20250115
  Serious: No
  Sender: AMGEN
  Company Number: US-AMGEN-USASP2024239797

PATIENT
  Age: 70 Year
  Sex: Female

DRUGS (1)
  1. REPATHA [Suspect]
     Active Substance: EVOLOCUMAB
     Indication: Arteriosclerosis
     Dosage: 140 MILLIGRAM / ML, Q2WK
     Route: 065
     Dates: start: 20241008, end: 202411

REACTIONS (3)
  - Headache [Unknown]
  - Muscle spasms [Unknown]
  - Abdominal pain upper [Unknown]
